FAERS Safety Report 25082952 (Version 1)
Quarter: 2025Q1

REPORT INFORMATION
  Report Type: Spontaneous
  Country: US (occurrence: US)
  Receive Date: 20250317
  Receipt Date: 20250317
  Transmission Date: 20250409
  Serious: Yes (Death, Hospitalization)
  Sender: AMGEN
  Company Number: US-AMGEN-USASP2025045884

PATIENT

DRUGS (3)
  1. PREDNISONE [Suspect]
     Active Substance: PREDNISONE
     Indication: Immune-mediated adverse reaction
     Route: 065
  2. RITUXIMAB [Suspect]
     Active Substance: RITUXIMAB
     Indication: Immune-mediated adverse reaction
     Route: 065
  3. INFLIXIMAB [Suspect]
     Active Substance: INFLIXIMAB
     Indication: Immune-mediated adverse reaction
     Route: 065

REACTIONS (18)
  - Pneumonitis [Fatal]
  - Colitis [Fatal]
  - Myocarditis [Fatal]
  - Death [Fatal]
  - Unevaluable event [Unknown]
  - Drug effective for unapproved indication [Unknown]
  - Neoplasm progression [Unknown]
  - Hepatitis [Unknown]
  - Acute kidney injury [Unknown]
  - Myasthenia gravis [Unknown]
  - Myositis [Unknown]
  - Adrenal insufficiency [Unknown]
  - Skin toxicity [Unknown]
  - Mucosal toxicity [Unknown]
  - Encephalitis [Unknown]
  - Neuropathy peripheral [Unknown]
  - Hypothyroidism [Unknown]
  - Off label use [Unknown]
